FAERS Safety Report 5896918-3 (Version None)
Quarter: 2008Q3

REPORT INFORMATION
  Report Type: 
  Country: None (occurrence: None)
  Receive Date: 20080923
  Receipt Date: 20080908
  Transmission Date: 20090109
  Serious: Yes (Death, Hospitalization)
  Sender: FDA-Public Use
  Company Number: KADN20080352

PATIENT
  Age: 31 Year
  Sex: Female

DRUGS (4)
  1. MORPHINE [Suspect]
     Dosage: ORAL
     Route: 048
     Dates: end: 20050101
  2. ALPRAZOLAM [Suspect]
     Dosage: ORAL
     Route: 048
     Dates: end: 20050101
  3. TEMAZEPAM [Suspect]
     Indication: INSOMNIA
     Dosage: ORAL
     Route: 048
     Dates: end: 20050101
  4. OXAZEPAM [Suspect]
     Dates: end: 20050101

REACTIONS (15)
  - BLOOD GLUCOSE INCREASED [None]
  - BLOOD PRESSURE DECREASED [None]
  - BLOOD SODIUM DECREASED [None]
  - BRAIN OEDEMA [None]
  - COMA [None]
  - CONFUSIONAL STATE [None]
  - DRUG TOXICITY [None]
  - FATIGUE [None]
  - HEART RATE INCREASED [None]
  - PLATELET COUNT INCREASED [None]
  - PUPIL FIXED [None]
  - RESPIRATORY ARREST [None]
  - RESPIRATORY FAILURE [None]
  - ROAD TRAFFIC ACCIDENT [None]
  - WHITE BLOOD CELL COUNT INCREASED [None]
